FAERS Safety Report 24303747 (Version 1)
Quarter: 2024Q3

REPORT INFORMATION
  Report Type: Report from Study
  Country: US (occurrence: US)
  Receive Date: 20240910
  Receipt Date: 20240910
  Transmission Date: 20241017
  Serious: Yes (Hospitalization, Other)
  Sender: AMGEN
  Company Number: US-AMGEN-HZN-2024-004404

PATIENT
  Age: 64 Year
  Sex: Female

DRUGS (2)
  1. UPLIZNA [Suspect]
     Active Substance: INEBILIZUMAB-CDON
     Indication: Product used for unknown indication
     Dosage: UNK, Q6MO
     Route: 042
  2. UPLIZNA [Suspect]
     Active Substance: INEBILIZUMAB-CDON
     Dosage: UNK, Q6MO
     Route: 042
     Dates: start: 20240830

REACTIONS (6)
  - Intestinal obstruction [Unknown]
  - Chest pain [Unknown]
  - Blood pressure increased [Unknown]
  - Cough [Unknown]
  - Band sensation [Unknown]
  - Hypoaesthesia [Unknown]

NARRATIVE: CASE EVENT DATE: 20240101
